FAERS Safety Report 26173053 (Version 1)
Quarter: 2025Q4

REPORT INFORMATION
  Report Type: Spontaneous
  Country: US (occurrence: US)
  Receive Date: 20251218
  Receipt Date: 20251218
  Transmission Date: 20260118
  Serious: No
  Sender: ROCHE
  Company Number: US-ROCHE-10000461911

PATIENT
  Sex: Male

DRUGS (3)
  1. HEMLIBRA [Suspect]
     Active Substance: EMICIZUMAB-KXWH
     Indication: Factor VIII deficiency
     Dosage: HEMLIBRA SDV, STRENGTH: 105 MG/.7ML
     Route: 058
     Dates: start: 202202
  2. AMINOCAPROIC ACID [Concomitant]
     Active Substance: AMINOCAPROIC ACID
     Indication: Product used for unknown indication
  3. ELOCTATE [Concomitant]
     Active Substance: EFMOROCTOCOG ALFA
     Indication: Product used for unknown indication

REACTIONS (1)
  - Hypersensitivity [Unknown]
